FAERS Safety Report 17531040 (Version 1)
Quarter: 2020Q1

REPORT INFORMATION
  Report Type: Spontaneous
  Country: DE (occurrence: DE)
  Receive Date: 20200312
  Receipt Date: 20200312
  Transmission Date: 20200409
  Serious: Yes (Other)
  Sender: FDA-Public Use
  Company Number: DE-TEVA-2020-DE-1197958

PATIENT
  Age: 28 Year
  Sex: Male
  Weight: 90 kg

DRUGS (1)
  1. OFLOXACIN. [Suspect]
     Active Substance: OFLOXACIN
     Indication: BACTERIAL PROSTATITIS
     Dosage: 200 MG TWICE DAILY - FOR 1 MONTH (56 TABLETS), 400 MG
     Route: 048
     Dates: start: 20190710, end: 20190712

REACTIONS (10)
  - Hypoaesthesia [Not Recovered/Not Resolved]
  - Panic attack [Recovering/Resolving]
  - Sleep disorder [Recovering/Resolving]
  - Adverse reaction [Not Recovered/Not Resolved]
  - Depression [Recovering/Resolving]
  - Pain [Unknown]
  - Immobile [Not Recovered/Not Resolved]
  - Tendon pain [Not Recovered/Not Resolved]
  - Myositis [Not Recovered/Not Resolved]
  - Tendonitis [Not Recovered/Not Resolved]

NARRATIVE: CASE EVENT DATE: 2019
